FAERS Safety Report 5274314-X (Version None)
Quarter: 2007Q1

REPORT INFORMATION
  Report Type: 
  Country: None (occurrence: None)
  Receive Date: 20070323
  Receipt Date: 20070315
  Transmission Date: 20070707
  Serious: Yes (Other)
  Sender: FDA-Public Use
  Company Number: ES-AMGEN-UK215449

PATIENT
  Sex: Female

DRUGS (1)
  1. ARANESP [Suspect]
     Indication: MYELODYSPLASTIC SYNDROME

REACTIONS (1)
  - SUPRAVENTRICULAR TACHYCARDIA [None]
